FAERS Safety Report 17439601 (Version 1)
Quarter: 2020Q1

REPORT INFORMATION
  Report Type: Spontaneous
  Country: US (occurrence: US)
  Receive Date: 20200205
  Receipt Date: 20200205
  Transmission Date: 20200409
  Serious: Yes (Hospitalization)
  Sender: FDA-Public Use
  Company Number: None

PATIENT
  Age: 71 Year
  Sex: Male

DRUGS (1)
  1. TENOFOVIR DISOPROXIL FUMA [Suspect]
     Active Substance: TENOFOVIR DISOPROXIL FUMARATE
     Indication: CHRONIC HEPATITIS B
     Route: 048
     Dates: start: 20180706

REACTIONS (7)
  - Fall [None]
  - Spinal fracture [None]
  - Clavicle fracture [None]
  - Weight decreased [None]
  - Femur fracture [None]
  - Rib fracture [None]
  - Wrist fracture [None]

NARRATIVE: CASE EVENT DATE: 201908
